FAERS Safety Report 24120691 (Version 1)
Quarter: 2024Q3

REPORT INFORMATION
  Report Type: Other
  Country: IR (occurrence: IR)
  Receive Date: 20240722
  Receipt Date: 20240722
  Transmission Date: 20241017
  Serious: Yes (Hospitalization, Other)
  Sender: Spectra Medical Devices
  Company Number: IR-Spectra Medical Devices, LLC-2159427

PATIENT
  Age: 19 Year
  Sex: Female

DRUGS (18)
  1. SODIUM CHLORIDE [Suspect]
     Active Substance: SODIUM CHLORIDE
     Indication: Product used for unknown indication
     Route: 065
  2. SODIUM BICARBONATE [Suspect]
     Active Substance: SODIUM BICARBONATE
     Route: 065
  3. ACETYLCYSTEINE [Concomitant]
     Active Substance: ACETYLCYSTEINE
     Route: 065
  4. CALCIUM GLUCONATE [Concomitant]
     Active Substance: CALCIUM GLUCONATE
     Route: 065
  5. MAGNESIUM SULFATE [Concomitant]
     Active Substance: MAGNESIUM SULFATE\MAGNESIUM SULFATE HEPTAHYDRATE
     Route: 065
  6. ALUMINUM PHOSPHIDE [Concomitant]
     Active Substance: ALUMINUM PHOSPHIDE
     Route: 048
  7. LEVOFLOXACIN [Concomitant]
     Active Substance: LEVOFLOXACIN
     Route: 065
  8. VANCOMYCIN HYDROCHLORIDE [Concomitant]
     Active Substance: VANCOMYCIN HYDROCHLORIDE
     Route: 065
  9. MEROPENEM [Concomitant]
     Active Substance: MEROPENEM
     Route: 065
  10. CLINDAMYCIN [Concomitant]
     Active Substance: CLINDAMYCIN
     Route: 065
  11. CEFTRIAXONE [Concomitant]
     Active Substance: CEFTRIAXONE\CEFTRIAXONE SODIUM
     Route: 065
  12. HYDROCORTISONE ACETATE [Concomitant]
     Active Substance: HYDROCORTISONE ACETATE
     Route: 065
  13. POTASSIUM CHLORIDE [Concomitant]
     Active Substance: POTASSIUM CHLORIDE
     Route: 065
  14. INSULIN NOS [Concomitant]
     Active Substance: INSULIN NOS
     Route: 065
  15. GLUCOSE (DEXTROSE MONOHYDRATE) [Concomitant]
     Active Substance: DEXTROSE MONOHYDRATE
     Route: 065
  16. NOREPINEPHRINE [Concomitant]
     Active Substance: NOREPINEPHRINE\NOREPINEPHRINE BITARTRATE
     Route: 065
  17. DIAZEPAM [Concomitant]
     Active Substance: DIAZEPAM
     Route: 042
  18. PROPRANOLOL [Concomitant]
     Active Substance: PROPRANOLOL HYDROCHLORIDE
     Route: 065

REACTIONS (1)
  - Acute pulmonary oedema [Recovered/Resolved]
